FAERS Safety Report 11663396 (Version 2)
Quarter: 2015Q4

REPORT INFORMATION
  Report Type: Report from Study
  Country: US (occurrence: US)
  Receive Date: 20151027
  Receipt Date: 20151126
  Transmission Date: 20160304
  Serious: Yes (Other)
  Sender: FDA-Public Use
  Company Number: US-AMGEN-USASL2015111576

PATIENT
  Age: 79 Year
  Sex: Female

DRUGS (2)
  1. METHOTREXATE [Concomitant]
     Active Substance: METHOTREXATE
     Dosage: UNK
  2. ENBREL [Suspect]
     Active Substance: ETANERCEPT
     Indication: RHEUMATOID ARTHRITIS
     Dosage: 50 MG, QWK
     Route: 065
     Dates: start: 199906

REACTIONS (6)
  - Shoulder arthroplasty [Unknown]
  - Rheumatoid arthritis [Not Recovered/Not Resolved]
  - Musculoskeletal disorder [Unknown]
  - Knee arthroplasty [Unknown]
  - Memory impairment [Not Recovered/Not Resolved]
  - Cerebral disorder [Unknown]

NARRATIVE: CASE EVENT DATE: 2015
